FAERS Safety Report 11716716 (Version 3)
Quarter: 2015Q4

REPORT INFORMATION
  Report Type: Spontaneous
  Country: US (occurrence: US)
  Receive Date: 20151104
  Receipt Date: 20151120
  Transmission Date: 20160304
  Serious: No
  Sender: FDA-Public Use
  Company Number: US-ELI_LILLY_AND_COMPANY-US201102006385

PATIENT
  Sex: Female

DRUGS (4)
  1. FORTEO [Suspect]
     Active Substance: TERIPARATIDE
     Dosage: 20 UG, QD
     Route: 065
  2. FORTEO [Suspect]
     Active Substance: TERIPARATIDE
     Dosage: 20 UG, QD
     Route: 065
  3. FORTEO [Suspect]
     Active Substance: TERIPARATIDE
     Dosage: 20 UG, QD
     Route: 065
  4. FORTEO [Suspect]
     Active Substance: TERIPARATIDE
     Indication: OSTEOPOROSIS
     Dosage: 20 UG, QD
     Route: 065
     Dates: start: 201009

REACTIONS (16)
  - Weight decreased [Unknown]
  - Gait disturbance [Unknown]
  - Pain in extremity [Unknown]
  - Hair growth abnormal [Unknown]
  - Arthralgia [Unknown]
  - Arthritis [Recovering/Resolving]
  - Nasopharyngitis [Unknown]
  - Fear [Unknown]
  - Pain [Unknown]
  - Injection site pain [Unknown]
  - Musculoskeletal disorder [Unknown]
  - Movement disorder [Unknown]
  - Dysstasia [Unknown]
  - Joint swelling [Recovered/Resolved]
  - Peripheral swelling [Recovering/Resolving]
  - Medication error [Unknown]
